FAERS Safety Report 7103681-7 (Version None)
Quarter: 2010Q4

REPORT INFORMATION
  Report Type: 
  Country: None (occurrence: None)
  Receive Date: 20101109
  Receipt Date: 20101026
  Transmission Date: 20110411
  Serious: Yes (Hospitalization)
  Sender: FDA-Public Use
  Company Number: 014616

PATIENT
  Sex: Male
  Weight: 75.2 kg

DRUGS (20)
  1. CERTOLIZUMAB PEGOL [Suspect]
     Indication: RHEUMATOID ARTHRITIS
     Dosage: (400 MG 1X/2 WEEKS SUBCUTANEOUS)
     Route: 058
     Dates: start: 20100525, end: 20100625
  2. METHOTREXATE [Concomitant]
  3. METHYLPREDNISOLONE [Concomitant]
  4. NAPROXEN [Concomitant]
  5. CAPTOPRIL [Concomitant]
  6. HYDROCHLOROTHIAZIDE [Concomitant]
  7. CLONIDINE [Concomitant]
  8. ALISKIREN [Concomitant]
  9. AMLODIPINE [Concomitant]
  10. LEVOTHYROXIN 0.05 MG KSA [Concomitant]
  11. PRILOSEC [Concomitant]
  12. PRAVACHOL [Concomitant]
  13. NIACIN [Concomitant]
  14. FLUTICASONE PROPIONATE [Concomitant]
  15. CLARITIN /00917501/ [Concomitant]
  16. GLIPIZIDE [Concomitant]
  17. BRIMONIDINE TARTRATE [Concomitant]
  18. DORZOLAMIDE HYDROCHLORIDE AND TIMOLOL MALEATE [Concomitant]
  19. HYDROCODONE BITARTRATE [Concomitant]
  20. MULTI-VITAMINS [Concomitant]

REACTIONS (5)
  - BLISTER [None]
  - BLOOD UREA INCREASED [None]
  - CELLULITIS [None]
  - HAEMOGLOBIN DECREASED [None]
  - STAPHYLOCOCCUS TEST POSITIVE [None]
